FAERS Safety Report 7996330-7 (Version None)
Quarter: 2011Q4

REPORT INFORMATION
  Report Type: 
  Country: None (occurrence: None)
  Receive Date: 20111220
  Receipt Date: 20111216
  Transmission Date: 20120403
  Serious: Yes (Death)
  Sender: FDA-Public Use
  Company Number: US-ASTRAZENECA-2011SE76455

PATIENT
  Age: 40 Year
  Sex: Female

DRUGS (10)
  1. QUETIAPINE [Suspect]
     Route: 048
  2. CLONIDINE [Suspect]
     Route: 048
  3. OMEPRAZOLE [Suspect]
     Route: 048
  4. CLONAZEPAM [Suspect]
     Route: 048
  5. CYCLOBENZAPRINE [Suspect]
     Route: 048
  6. BUPROPION HCL [Suspect]
     Route: 048
  7. CLOZAPINE [Suspect]
     Route: 048
  8. GABAPENTIN [Suspect]
     Route: 048
  9. DESVENLAFAXINE [Suspect]
     Route: 048
  10. AMPHETAMINE AND DEXTROAMPHETAMINE SALTS [Suspect]
     Route: 048

REACTIONS (2)
  - COMPLETED SUICIDE [None]
  - TOXICITY TO VARIOUS AGENTS [None]
